FAERS Safety Report 11780437 (Version 2)
Quarter: 2015Q4

REPORT INFORMATION
  Report Type: Spontaneous
  Country: US (occurrence: US)
  Receive Date: 20151126
  Receipt Date: 20151218
  Transmission Date: 20160305
  Serious: No
  Sender: FDA-Public Use
  Company Number: US-JNJFOC-20151007192

PATIENT
  Sex: Female

DRUGS (2)
  1. VISINE A MULTI-ACTION EYE ALLERGY RELIEF [Suspect]
     Active Substance: NAPHAZOLINE HYDROCHLORIDE\PHENIRAMINE MALEATE
     Indication: ACCIDENTAL EXPOSURE TO PRODUCT
     Dosage: INTERVAL: ONCE
     Route: 048
     Dates: start: 20151008, end: 20151008
  2. ALL OTHER THERAPEUTIC DRUG [Concomitant]
     Active Substance: UNSPECIFIED INGREDIENT
     Indication: COUGH
     Route: 048

REACTIONS (2)
  - Accidental exposure to product [Unknown]
  - Expired product administered [Unknown]

NARRATIVE: CASE EVENT DATE: 20151008
